FAERS Safety Report 10133425 (Version 2)
Quarter: 2014Q2

REPORT INFORMATION
  Report Type: Spontaneous
  Country: FI (occurrence: FI)
  Receive Date: 20140428
  Receipt Date: 20140506
  Transmission Date: 20141212
  Serious: Yes (Disabling)
  Sender: FDA-Public Use
  Company Number: FI-B.I. PHARMACEUTICALS,INC./RIDGEFIELD-2014-BI-18335SF

PATIENT
  Age: 83 Year
  Sex: Female

DRUGS (12)
  1. TRAJENTA [Suspect]
     Indication: DIABETES MELLITUS
     Dosage: 5 MG
     Route: 065
     Dates: start: 20140304, end: 20140401
  2. TRAJENTA [Suspect]
     Indication: RENAL FAILURE
  3. FURESIS [Concomitant]
     Dosage: 40 MG
     Route: 065
  4. SELOKEN ZOC [Concomitant]
     Dosage: 47.5 MG
     Route: 065
  5. LINATIL [Concomitant]
     Dosage: 10 MG
     Route: 065
  6. PRIMASPAN [Concomitant]
     Dosage: 250 MG
     Route: 065
  7. THYROXIN [Concomitant]
     Dosage: 0.1 MG
     Route: 065
  8. MIRTAZAPIN [Concomitant]
     Dosage: 30 MG
     Route: 065
  9. KALEORID [Concomitant]
     Dosage: 2 G
     Route: 065
  10. FOLIVER [Concomitant]
     Dosage: 1 MG
     Route: 065
  11. XANOR [Concomitant]
     Dosage: IF NEEDED
     Route: 065
  12. TENOX [Concomitant]
     Dosage: IF NEEDED
     Route: 065

REACTIONS (1)
  - Depression [Recovered/Resolved]
